FAERS Safety Report 10227916 (Version 1)
Quarter: 2014Q2

REPORT INFORMATION
  Report Type: Spontaneous
  Country: US (occurrence: None)
  Receive Date: 20140609
  Receipt Date: 20140609
  Transmission Date: 20141212
  Serious: Yes (Disabling)
  Sender: FDA-Public Use
  Company Number: None

PATIENT
  Age: 81 Year
  Sex: Female
  Weight: 65.32 kg

DRUGS (5)
  1. CIPROFLOXACIN [Suspect]
     Indication: URINARY TRACT INFECTION
     Dates: start: 20140514, end: 20140518
  2. MULTI CENTRUM SILVER [Concomitant]
  3. VITE E [Concomitant]
  4. VITE D [Concomitant]
  5. MAGNESIUM [Concomitant]

REACTIONS (7)
  - Contusion [None]
  - Muscle spasms [None]
  - Burning sensation [None]
  - Abdominal pain upper [None]
  - Neck pain [None]
  - Pain in extremity [None]
  - Bone pain [None]
